FAERS Safety Report 9674616 (Version 1)
Quarter: 2013Q4

REPORT INFORMATION
  Report Type: Spontaneous
  Country: DK (occurrence: DK)
  Receive Date: 20131107
  Receipt Date: 20131107
  Transmission Date: 20140711
  Serious: Yes (Other)
  Sender: FDA-Public Use
  Company Number: DK-ASTRAZENECA-2013SE79790

PATIENT
  Sex: Female

DRUGS (5)
  1. SYMBICORT [Suspect]
     Indication: CHRONIC OBSTRUCTIVE PULMONARY DISEASE
     Dosage: 2 DOSES, TWICE DAILY
     Route: 055
     Dates: start: 2005
  2. DIGOXIN [Interacting]
     Indication: CARDIAC FIBRILLATION
     Dosage: 62.5 , MIKROGRAMS TWO TABLETS DAILY
     Route: 065
  3. BRICANYL [Concomitant]
     Dosage: PRN
  4. SPIRIVA [Concomitant]
     Indication: CHRONIC OBSTRUCTIVE PULMONARY DISEASE
     Dosage: ONCE DAILY
  5. MAREVAN [Concomitant]
     Indication: CARDIAC FIBRILLATION

REACTIONS (5)
  - Drug interaction [Unknown]
  - Cardiac fibrillation [Unknown]
  - Arrhythmia [Unknown]
  - Dyspnoea [Unknown]
  - Muscle spasms [Unknown]
